FAERS Safety Report 14010978 (Version 1)
Quarter: 2017Q3

REPORT INFORMATION
  Report Type: Spontaneous
  Country: US (occurrence: US)
  Receive Date: 20170925
  Receipt Date: 20170925
  Transmission Date: 20171128
  Serious: Yes (Life-Threatening, Hospitalization, Disabling, Other)
  Sender: FDA-Public Use
  Company Number: None

PATIENT
  Age: 33 Year
  Sex: Female
  Weight: 74.25 kg

DRUGS (6)
  1. ZIPRASIDONE HCL [Suspect]
     Active Substance: ZIPRASIDONE HYDROCHLORIDE
     Indication: BIPOLAR DISORDER
     Dosage: ?          QUANTITY:30 CAPSULE(S);?
     Route: 048
     Dates: start: 20150419, end: 20170925
  2. LORAZEPAM. [Concomitant]
     Active Substance: LORAZEPAM
  3. COGENTI [Concomitant]
  4. ALOGLIPTIN. [Concomitant]
     Active Substance: ALOGLIPTIN
  5. GEODON [Concomitant]
     Active Substance: ZIPRASIDONE HYDROCHLORIDE\ZIPRASIDONE MESYLATE
  6. LAMICTAL [Concomitant]
     Active Substance: LAMOTRIGINE

REACTIONS (20)
  - Diabetes mellitus [None]
  - Seizure [None]
  - Therapy change [None]
  - Neuropathy peripheral [None]
  - Hallucination, auditory [None]
  - Hallucination, tactile [None]
  - Educational problem [None]
  - Agitation [None]
  - Suicidal ideation [None]
  - Akathisia [None]
  - Overdose [None]
  - Hallucination, visual [None]
  - Insomnia [None]
  - Homicidal ideation [None]
  - Deformity [None]
  - Extrapyramidal disorder [None]
  - Anxiety [None]
  - Catatonia [None]
  - Loss of employment [None]
  - Apparent death [None]

NARRATIVE: CASE EVENT DATE: 20170406
